FAERS Safety Report 20564671 (Version 1)
Quarter: 2022Q1

REPORT INFORMATION
  Report Type: Spontaneous
  Country: CN (occurrence: CN)
  Receive Date: 20220308
  Receipt Date: 20220308
  Transmission Date: 20220424
  Serious: Yes (Other)
  Sender: FDA-Public Use
  Company Number: CN-LUPIN PHARMACEUTICALS INC.-2022-03083

PATIENT
  Age: 47 Year
  Sex: Male

DRUGS (3)
  1. METHYLPREDNISOLONE [Suspect]
     Active Substance: METHYLPREDNISOLONE
     Indication: Angiolymphoid hyperplasia with eosinophilia
     Dosage: 52 MG, QD
     Route: 065
  2. METHYLPREDNISOLONE [Suspect]
     Active Substance: METHYLPREDNISOLONE
     Indication: Glomerulonephritis membranous
     Dosage: 24 MG, QD, REDUCED DOSE
     Route: 065
  3. TACROLIMUS [Suspect]
     Active Substance: TACROLIMUS
     Indication: Angiolymphoid hyperplasia with eosinophilia
     Dosage: 1.5 MG, BID
     Route: 065

REACTIONS (4)
  - Rebound effect [Recovered/Resolved]
  - Angiolymphoid hyperplasia with eosinophilia [Recovered/Resolved]
  - Glomerulonephritis membranous [Recovered/Resolved]
  - Off label use [Unknown]
